FAERS Safety Report 16826131 (Version 1)
Quarter: 2019Q3

REPORT INFORMATION
  Report Type: Spontaneous
  Country: US (occurrence: US)
  Receive Date: 20190919
  Receipt Date: 20190919
  Transmission Date: 20191005
  Serious: Yes (Hospitalization, Other)
  Sender: FDA-Public Use
  Company Number: US-GW PHARMA-201909USGW3313

PATIENT

DRUGS (1)
  1. EPIDIOLEX [Suspect]
     Active Substance: CANNABIDIOL
     Indication: PRODUCT USED FOR UNKNOWN INDICATION
     Dosage: 6.7MG/KG, 200 MILLIGRAM, BID
     Route: 048
     Dates: start: 20181119

REACTIONS (1)
  - Tracheitis [Unknown]

NARRATIVE: CASE EVENT DATE: 20190830
